FAERS Safety Report 10509372 (Version 2)
Quarter: 2015Q1

REPORT INFORMATION
  Report Type: Spontaneous
  Country: PT (occurrence: PT)
  Receive Date: 20141009
  Receipt Date: 20150305
  Transmission Date: 20150720
  Serious: Yes (Disabling)
  Sender: FDA-Public Use
  Company Number: PHHY2014PT130654

PATIENT
  Age: 70 Year
  Sex: Female
  Weight: 68 kg

DRUGS (16)
  1. ROPINIROLE TEVA [Suspect]
     Active Substance: ROPINIROLE
     Indication: PARKINSON^S DISEASE
     Dosage: 8 MG, BID
     Route: 048
     Dates: start: 20140827
  2. STALEVO [Suspect]
     Active Substance: CARBIDOPA\ENTACAPONE\LEVODOPA
     Indication: PROGRESSIVE SUPRANUCLEAR PALSY
     Dosage: 200/50/200 MG 1XDAY PO (IN THE MORNING) AND 100/25/200 2XDAY PO (AT LUNCH AND EVENING)
     Route: 048
  3. STALEVO [Suspect]
     Active Substance: CARBIDOPA\ENTACAPONE\LEVODOPA
     Dosage: 1 DF, BID, STRENGTH: 100/25/200 MG (AT LUNCH AND EVENING)
     Route: 048
     Dates: start: 20140905, end: 20140918
  4. RIVOTRIL [Suspect]
     Active Substance: CLONAZEPAM
     Indication: SLEEP DISORDER
     Dosage: 1 MG, QD
     Route: 048
     Dates: start: 20140826
  5. EUCREAS [Concomitant]
     Active Substance: METFORMIN HYDROCHLORIDE\VILDAGLIPTIN
     Indication: TYPE 2 DIABETES MELLITUS
     Dosage: 1 DF, QD(METFORMIN 850 MG, VILDAGLIPTIN 50 MG)
     Route: 048
  6. PRETERAX                           /01421201/ [Concomitant]
     Active Substance: INDAPAMIDE\PERINDOPRIL
     Indication: HYPERTENSION
     Dosage: 1 DF, QD
     Route: 048
  7. MEMANTINE TEVA [Suspect]
     Active Substance: MEMANTINE
     Indication: DEMENTIA ALZHEIMER^S TYPE
     Dosage: 5 MG, TID
     Route: 065
  8. MEMANTINE TEVA [Suspect]
     Active Substance: MEMANTINE
     Dosage: 5 MG, BID
     Route: 048
     Dates: start: 20140905
  9. ROPINIROLE TEVA [Suspect]
     Active Substance: ROPINIROLE
     Dosage: 8 MG, BID
     Route: 048
  10. LOSEC                                   /CAN/ [Concomitant]
     Indication: PRODUCT USED FOR UNKNOWN INDICATION
     Dosage: 20 MG, QD
     Route: 048
  11. METFORMIN//METFORMIN HYDROCHLORIDE [Concomitant]
     Indication: TYPE 2 DIABETES MELLITUS
     Dosage: 1 DF, QD
     Route: 048
  12. GENEXIN [Concomitant]
     Indication: DEPRESSION
     Dosage: 150 MG, QD
     Route: 048
  13. SIMVASTATIN. [Concomitant]
     Active Substance: SIMVASTATIN
     Indication: HYPERCHOLESTEROLAEMIA
     Dosage: 20 MG, QD
     Route: 048
  14. STALEVO [Suspect]
     Active Substance: CARBIDOPA\ENTACAPONE\LEVODOPA
     Dosage: 1 DF, TID, STRENGTH: 200/50/200
     Route: 048
  15. ROPINIROLE TEVA [Suspect]
     Active Substance: ROPINIROLE
     Dosage: 8 MG, QD
     Route: 048
     Dates: start: 20140827
  16. ACTONEL [Concomitant]
     Active Substance: RISEDRONATE SODIUM
     Indication: PRODUCT USED FOR UNKNOWN INDICATION
     Dosage: 1 DF, QW
     Route: 065

REACTIONS (5)
  - Abasia [Not Recovered/Not Resolved]
  - Apathy [Recovered/Resolved]
  - Off label use [Unknown]
  - Aphasia [Not Recovered/Not Resolved]
  - Asthenia [Recovered/Resolved]

NARRATIVE: CASE EVENT DATE: 20140906
